FAERS Safety Report 7537148-9 (Version None)
Quarter: 2011Q2

REPORT INFORMATION
  Report Type: 
  Country: None (occurrence: None)
  Receive Date: 20110609
  Receipt Date: 20110607
  Transmission Date: 20111010
  Serious: Yes (Life-Threatening, Other)
  Sender: FDA-Public Use
  Company Number: PHHY2011US48330

PATIENT
  Age: 68 Year
  Sex: Female

DRUGS (6)
  1. MAGNESIUM SULFATE [Concomitant]
     Dosage: UNK
  2. MINERALS NOS [Concomitant]
  3. RECLAST [Suspect]
     Indication: OSTEOPOROSIS
     Dosage: 5 MG, UNK
     Route: 042
     Dates: start: 20110101
  4. VITAMIN TAB [Concomitant]
  5. CALCIUM CARBONATE [Concomitant]
     Dosage: UNK
  6. ZINC [Concomitant]
     Dosage: UNK

REACTIONS (4)
  - FALL [None]
  - PLATELET COUNT DECREASED [None]
  - SKIN DISCOLOURATION [None]
  - MULTIPLE FRACTURES [None]
